FAERS Safety Report 6519355-7 (Version None)
Quarter: 2009Q4

REPORT INFORMATION
  Report Type: 
  Country: None (occurrence: None)
  Receive Date: 20091228
  Receipt Date: 20091217
  Transmission Date: 20100525
  Serious: Yes (Hospitalization)
  Sender: FDA-Public Use
  Company Number: FR-BAYER-200943469GPV

PATIENT
  Age: 55 Year
  Sex: Male

DRUGS (8)
  1. NEXAVAR [Suspect]
     Indication: HEPATIC NEOPLASM MALIGNANT
     Dosage: UNIT DOSE: 200 MG
     Route: 048
     Dates: start: 20090512, end: 20090528
  2. NEXAVAR [Suspect]
     Dosage: UNIT DOSE: 200 MG
     Route: 048
     Dates: start: 20090529
  3. LANSOPRAZOLE [Concomitant]
     Dosage: TOTAL DAILY DOSE: 30 MG
     Route: 048
     Dates: start: 20090518
  4. HEXAQUINE [Concomitant]
     Route: 048
     Dates: start: 20090518
  5. PROPRANOLOL [Concomitant]
  6. IMUREL [Concomitant]
     Dosage: 2/D FOR SEVERAL YEARS
  7. CACIT D3 [Concomitant]
     Dates: start: 20080101
  8. ALDACTONE [Concomitant]
     Dates: start: 20080701

REACTIONS (1)
  - CONFUSIONAL STATE [None]
